FAERS Safety Report 26154755 (Version 1)
Quarter: 2025Q4

REPORT INFORMATION
  Report Type: Spontaneous
  Country: US (occurrence: US)
  Receive Date: 20251215
  Receipt Date: 20251215
  Transmission Date: 20260118
  Serious: No
  Sender: BIOTEST
  Company Number: US-BIOTEST-016232

PATIENT
  Sex: Female

DRUGS (1)
  1. HUMAN IMMUNOGLOBULIN G [Suspect]
     Active Substance: HUMAN IMMUNOGLOBULIN G
     Indication: Secondary immunodeficiency
     Dosage: INTRAVENOUS IMMUNOGLOBULIN (IG)

REACTIONS (2)
  - Symmetrical drug-related intertriginous and flexural exanthema [Unknown]
  - Product use in unapproved indication [Unknown]
